FAERS Safety Report 19192186 (Version 2)
Quarter: 2021Q2

REPORT INFORMATION
  Report Type: Spontaneous
  Country: GB (occurrence: GB)
  Receive Date: 20210428
  Receipt Date: 20210601
  Transmission Date: 20210717
  Serious: Yes (Other)
  Sender: FDA-Public Use
  Company Number: GB-BAYER-2021-129651

PATIENT
  Age: 68 Year
  Sex: Male
  Weight: 79.37 kg

DRUGS (2)
  1. CIPROXIN 500 MG [Suspect]
     Active Substance: CIPROFLOXACIN
     Indication: ILL-DEFINED DISORDER
     Dosage: 500 MG, BID
     Route: 048
     Dates: start: 20160825, end: 20160906
  2. THYROXINE [Concomitant]
     Active Substance: LEVOTHYROXINE
     Indication: ILL-DEFINED DISORDER
     Dosage: UNK

REACTIONS (4)
  - Myalgia [Recovered/Resolved]
  - Sleep disorder [Recovered/Resolved]
  - Arthralgia [Recovered/Resolved]
  - Defaecation urgency [Recovered/Resolved]

NARRATIVE: CASE EVENT DATE: 20160825
